FAERS Safety Report 23782211 (Version 1)
Quarter: 2024Q2

REPORT INFORMATION
  Report Type: Spontaneous
  Country: US (occurrence: None)
  Receive Date: 20240425
  Receipt Date: 20240425
  Transmission Date: 20240715
  Serious: Yes (Other)
  Sender: FDA-Public Use
  Company Number: US-Unichem Pharmaceuticals (USA) Inc-UCM202404-000437

PATIENT
  Age: 21 Year
  Sex: Male

DRUGS (7)
  1. IRBESARTAN [Suspect]
     Active Substance: IRBESARTAN
     Indication: Proteinuria
     Dosage: UNKNOWN
  2. SPARSENTAN [Concomitant]
     Active Substance: SPARSENTAN
     Indication: Proteinuria
     Dosage: UNKNOWN
  3. SPARSENTAN [Concomitant]
     Active Substance: SPARSENTAN
     Dosage: UNKNOWN
  4. CELLCEPT [Concomitant]
     Active Substance: MYCOPHENOLATE MOFETIL
     Indication: Product used for unknown indication
     Dosage: UNKNOWN
  5. CELLCEPT [Concomitant]
     Active Substance: MYCOPHENOLATE MOFETIL
     Dosage: UNKNOWN
  6. BUDESONIDE [Concomitant]
     Active Substance: BUDESONIDE
     Indication: Product used for unknown indication
     Dosage: UNKNOWN
  7. LISINOPRIL [Concomitant]
     Active Substance: LISINOPRIL
     Indication: Product used for unknown indication
     Dosage: UNKNOWN

REACTIONS (3)
  - Condition aggravated [Recovered/Resolved]
  - Proteinuria [Recovered/Resolved]
  - Drug ineffective [Unknown]
